FAERS Safety Report 6019923-5 (Version None)
Quarter: 2008Q4

REPORT INFORMATION
  Report Type: 
  Country: None (occurrence: None)
  Receive Date: 20081223
  Receipt Date: 20081215
  Transmission Date: 20090506
  Serious: Yes (Other)
  Sender: FDA-Public Use
  Company Number: 2008S1012264

PATIENT
  Age: 23 Year
  Sex: Male

DRUGS (3)
  1. PHOSPHOSODA FLAVOR NOT SPECIFIED [Suspect]
     Indication: COLONOSCOPY
     Dosage: 90 ML, TOTAL; PO
     Route: 048
  2. SODIUM PHOSPHATE DIBASIC/SODIUM PHOSPHATE [Suspect]
     Indication: COLONOSCOPY
     Dosage: X1; RTL
     Route: 054
  3. VITAMIN D [Concomitant]

REACTIONS (4)
  - HYPERPHOSPHATAEMIA [None]
  - HYPOCALCAEMIA [None]
  - HYPOMAGNESAEMIA [None]
  - PARAESTHESIA [None]
